FAERS Safety Report 5326162-X (Version None)
Quarter: 2007Q2

REPORT INFORMATION
  Report Type: 
  Country: None (occurrence: None)
  Receive Date: 20070516
  Receipt Date: 20070509
  Transmission Date: 20071010
  Serious: Yes (Hospitalization)
  Sender: FDA-Public Use
  Company Number: US-ASTRAZENECA-2007UW11151

PATIENT
  Age: 81 Year
  Sex: Female

DRUGS (15)
  1. SEROQUEL [Suspect]
     Indication: BIPOLAR II DISORDER
     Route: 048
  2. TOPROL-XL [Concomitant]
     Route: 048
  3. ASPIRIN [Concomitant]
  4. DIOVAN [Concomitant]
  5. ACIPHEX [Concomitant]
  6. SYNTHROID [Concomitant]
  7. LAMICTAL [Concomitant]
  8. DIGOXIN [Concomitant]
  9. ADVICOR [Concomitant]
  10. REMERON [Concomitant]
  11. CELEBREX [Concomitant]
  12. IRON [Concomitant]
  13. FOSAMAX [Concomitant]
  14. CALCIUM CHLORIDE [Concomitant]
  15. MULTI-VITAMIN [Concomitant]

REACTIONS (3)
  - JOINT SWELLING [None]
  - OEDEMA PERIPHERAL [None]
  - PAIN [None]
